FAERS Safety Report 8566329-0 (Version None)
Quarter: 2012Q3

REPORT INFORMATION
  Report Type: 
  Country: None (occurrence: None)
  Receive Date: 20120730
  Receipt Date: 20120730
  Transmission Date: 20120928
  Serious: Yes (Life-Threatening)
  Sender: FDA-Public Use
  Company Number: None

PATIENT
  Age: 30 Year
  Sex: Male
  Weight: 97.2 kg

DRUGS (2)
  1. CEFAZOLIN [Suspect]
     Dosage: 2 GM  OTHER   IV
     Route: 042
     Dates: start: 20120509, end: 20120509
  2. ROCURONIUM BROMIDE [Suspect]
     Dates: start: 20120509, end: 20120509

REACTIONS (3)
  - ANGIOEDEMA [None]
  - URTICARIA [None]
  - LARYNGEAL OEDEMA [None]
